FAERS Safety Report 21500031 (Version 3)
Quarter: 2023Q1

REPORT INFORMATION
  Report Type: Spontaneous
  Country: AU (occurrence: AU)
  Receive Date: 20221024
  Receipt Date: 20230302
  Transmission Date: 20230417
  Serious: Yes (Other)
  Sender: FDA-Public Use
  Company Number: AU-PFIZER INC-202201243413

PATIENT
  Age: 76 Year
  Sex: Male

DRUGS (4)
  1. METHOTREXATE (METHOTREXATE SODIUM) [Suspect]
     Active Substance: METHOTREXATE SODIUM
     Dosage: 5 MG, WEEKLY, HALF A 10 MG TABLET
     Route: 048
  2. METHOTREXATE (METHOTREXATE SODIUM) [Suspect]
     Active Substance: METHOTREXATE SODIUM
     Dosage: 10 MG, DAILY, 6 DAYS PER WEEK FOR 1 WEEK, TOTAL 60 MG
  3. FOLIC ACID [Concomitant]
     Active Substance: FOLIC ACID
     Dosage: 5 MG, DAILY, 6 DAYS/WEEK
     Route: 048
  4. FOLIC ACID [Concomitant]
     Active Substance: FOLIC ACID
     Dosage: 2.5 MG, ONCE WEEKLY

REACTIONS (4)
  - Cataract [Unknown]
  - Product packaging quantity issue [Unknown]
  - Accidental overdose [Unknown]
  - Epistaxis [Recovered/Resolved]
